FAERS Safety Report 11186161 (Version 2)
Quarter: 2015Q2

REPORT INFORMATION
  Report Type: Spontaneous
  Country: GB (occurrence: GB)
  Receive Date: 20150612
  Receipt Date: 20150625
  Transmission Date: 20150821
  Serious: Yes (Other)
  Sender: FDA-Public Use
  Company Number: GB-TEVA-569760USA

PATIENT
  Sex: Female

DRUGS (1)
  1. LEVONELLE [Suspect]
     Active Substance: LEVONORGESTREL
     Indication: POST COITAL CONTRACEPTION
     Route: 048
     Dates: start: 201505, end: 201505

REACTIONS (1)
  - Menometrorrhagia [Unknown]

NARRATIVE: CASE EVENT DATE: 2015
